FAERS Safety Report 15016008 (Version 3)
Quarter: 2020Q4

REPORT INFORMATION
  Report Type: Report from Study
  Country: PL (occurrence: PL)
  Receive Date: 20180615
  Receipt Date: 20201104
  Transmission Date: 20210113
  Serious: Yes (Hospitalization, Disabling, Other)
  Sender: FDA-Public Use
  Company Number: PL-REGENERON PHARMACEUTICALS, INC.-2018-24512

PATIENT

DRUGS (2)
  1. OFLOXACIN. [Concomitant]
     Active Substance: OFLOXACIN
     Indication: PRODUCT USED FOR UNKNOWN INDICATION
  2. EYLEA [Suspect]
     Active Substance: AFLIBERCEPT
     Indication: NEOVASCULAR AGE-RELATED MACULAR DEGENERATION
     Dosage: TOTAL OF 4 INJECTIONS, LAST INJECTION PRIOR TO EVENT ONSET ON 11-MAY-2018
     Route: 031
     Dates: start: 20170718, end: 20180511

REACTIONS (4)
  - Blindness unilateral [Unknown]
  - Product use issue [Unknown]
  - Multiple use of single-use product [Unknown]
  - Endophthalmitis [Recovering/Resolving]

NARRATIVE: CASE EVENT DATE: 20180514
